FAERS Safety Report 19230876 (Version 2)
Quarter: 2021Q3

REPORT INFORMATION
  Report Type: Spontaneous
  Country: JP (occurrence: JP)
  Receive Date: 20210507
  Receipt Date: 20210806
  Transmission Date: 20211014
  Serious: Yes (Life-Threatening, Hospitalization, Other)
  Sender: FDA-Public Use
  Company Number: JP-BRISTOL-MYERS SQUIBB COMPANY-BMS-2021-043482

PATIENT
  Age: 55 Year
  Sex: Male
  Weight: 52.9 kg

DRUGS (1)
  1. OPDIVO [Suspect]
     Active Substance: NIVOLUMAB
     Indication: OESOPHAGEAL CARCINOMA
     Dosage: UNK
     Route: 041
     Dates: start: 20190927, end: 20200827

REACTIONS (6)
  - Pyrexia [Unknown]
  - Blood pressure decreased [Unknown]
  - Aortitis [Unknown]
  - Bacteraemia [Unknown]
  - Dermatomyositis [Unknown]
  - Pyoderma gangrenosum [Not Recovered/Not Resolved]

NARRATIVE: CASE EVENT DATE: 20200918
